FAERS Safety Report 18511956 (Version 1)
Quarter: 2020Q4

REPORT INFORMATION
  Report Type: Spontaneous
  Country: US (occurrence: US)
  Receive Date: 20201117
  Receipt Date: 20201117
  Transmission Date: 20210114
  Serious: No
  Sender: FDA-Public Use
  Company Number: None

PATIENT
  Age: 25 Year
  Sex: Female

DRUGS (1)
  1. HUMIRA [Suspect]
     Active Substance: ADALIMUMAB
     Dosage: ?          OTHER FREQUENCY:WEEKLY;?

REACTIONS (5)
  - Anxiety [None]
  - Impaired healing [None]
  - Heart rate increased [None]
  - Panic attack [None]
  - Pruritus [None]

NARRATIVE: CASE EVENT DATE: 20201117
